FAERS Safety Report 4470694-3 (Version None)
Quarter: 2004Q4

REPORT INFORMATION
  Report Type: 
  Country: None (occurrence: None)
  Receive Date: 20041006
  Receipt Date: 20041006
  Transmission Date: 20050328
  Serious: No
  Sender: FDA-Public Use
  Company Number: None

PATIENT
  Age: 42 Year
  Sex: Male
  Weight: 87.5442 kg

DRUGS (1)
  1. VIOXX [Suspect]
     Indication: INFLAMMATION
     Dosage: 1 TABLET ORAL
     Route: 048
     Dates: start: 20040809, end: 20040930

REACTIONS (3)
  - CHEST PAIN [None]
  - MEDICATION ERROR [None]
  - PHARMACEUTICAL PRODUCT COMPLAINT [None]
